FAERS Safety Report 21315296 (Version 1)
Quarter: 2022Q3

REPORT INFORMATION
  Report Type: Spontaneous
  Country: US (occurrence: None)
  Receive Date: 20220909
  Receipt Date: 20220909
  Transmission Date: 20221027
  Serious: No
  Sender: FDA-Public Use
  Company Number: US-ARIS GLOBAL-202111-2086

PATIENT
  Sex: Female

DRUGS (30)
  1. OXERVATE [Suspect]
     Active Substance: CENEGERMIN-BKBJ
     Indication: Neurotrophic keratopathy
     Route: 047
     Dates: start: 20211021
  2. TYLENOL EXTRA STRENGTH [Concomitant]
     Active Substance: ACETAMINOPHEN
  3. TYLENOL 8HR [Concomitant]
     Active Substance: ACETAMINOPHEN
  4. REFRESH CLASSIC [Concomitant]
     Active Substance: POLYVINYL ALCOHOL\POVIDONE
  5. SINGULAIR [Concomitant]
     Active Substance: MONTELUKAST SODIUM
  6. PROBIOTIC WITH PREBIOTIC [Concomitant]
  7. MAGNESIUM [Concomitant]
     Active Substance: MAGNESIUM
  8. HYDROCHLOROTHIAZIDE\SPIRONOLACTONE [Concomitant]
     Active Substance: HYDROCHLOROTHIAZIDE\SPIRONOLACTONE
  9. SILDENAFIL CITRATE [Concomitant]
     Active Substance: SILDENAFIL CITRATE
  10. SERTRALINE HYDROCHLORIDE [Concomitant]
     Active Substance: SERTRALINE HYDROCHLORIDE
  11. CETYLPYRIDINIUM CHLORIDE [Concomitant]
     Active Substance: CETYLPYRIDINIUM CHLORIDE
  12. ROSUVASTATIN CALCIUM [Concomitant]
     Active Substance: ROSUVASTATIN CALCIUM
  13. XARELTO [Concomitant]
     Active Substance: RIVAROXABAN
  14. POTASSIUM CHLORIDE [Concomitant]
     Active Substance: POTASSIUM CHLORIDE
  15. OMEGA-3 + D [Concomitant]
     Dosage: 50-500 MG
  16. MULTI-VITAMIN DAILY [Concomitant]
  17. METOPROLOL SUCCINATE [Concomitant]
     Active Substance: METOPROLOL SUCCINATE
  18. LEVOTHYROXINE [Concomitant]
     Active Substance: LEVOTHYROXINE
  19. LEVALBUTEROL CONCENTRATE [Concomitant]
  20. TOUJEO [Concomitant]
     Active Substance: INSULIN GLARGINE
     Dosage: 300/ML INSULIN PEN
  21. LASIX [Concomitant]
     Active Substance: FUROSEMIDE
  22. FLUTICASONE-SALMETEROL [Concomitant]
  23. FLUOROURACIL [Concomitant]
     Active Substance: FLUOROURACIL
  24. FERROUS SULFATE [Concomitant]
     Active Substance: FERROUS SULFATE
     Dosage: 324(65) MG
  25. ESTRADIOL [Concomitant]
     Active Substance: ESTRADIOL
  26. CRANBERRY PLUS VITAMIN C [Concomitant]
  27. LOTRIMIN AF ANTIFUNGAL [Concomitant]
     Active Substance: MICONAZOLE NITRATE
  28. CLONAZEPAM [Concomitant]
     Active Substance: CLONAZEPAM
  29. VITAMIN B12 [Concomitant]
     Active Substance: CYANOCOBALAMIN
  30. TRACLEER [Concomitant]
     Active Substance: BOSENTAN

REACTIONS (2)
  - Product dose omission issue [Unknown]
  - Product administration error [Unknown]
